FAERS Safety Report 8082021-3 (Version None)
Quarter: 2012Q1

REPORT INFORMATION
  Report Type: 
  Country: None (occurrence: None)
  Receive Date: 20120130
  Receipt Date: 20120123
  Transmission Date: 20120608
  Serious: Yes (Other)
  Sender: FDA-Public Use
  Company Number: PHHY2012US002247

PATIENT
  Age: 78 Year
  Sex: Female

DRUGS (8)
  1. CYMBALTA [Concomitant]
  2. NITROFURANTOIN [Suspect]
     Dosage: UNK UKN, UNK
  3. LEXAPRO [Suspect]
     Dosage: 10 MG, QD
  4. FUROSEMIDE [Concomitant]
     Dosage: UNK UKN, UNK
  5. LISINOPRIL [Concomitant]
     Dosage: UNK UKN, UNK
  6. LORATADINE [Concomitant]
     Dosage: UNK UKN, UNK
  7. DICLOFENAC [Suspect]
     Dosage: UNK UKN, UNK
  8. LEXAPRO [Suspect]
     Dosage: 20 MG, QD

REACTIONS (2)
  - LIVER INJURY [None]
  - HEPATITIS [None]
